FAERS Safety Report 5037905-7 (Version None)
Quarter: 2006Q2

REPORT INFORMATION
  Report Type: 
  Country: None (occurrence: None)
  Receive Date: 20060628
  Receipt Date: 20060620
  Transmission Date: 20061013
  Serious: Yes (Life-Threatening, Other)
  Sender: FDA-Public Use
  Company Number: JP-ABBOTT-06P-087-0336359-00

PATIENT
  Age: 60 Year
  Sex: Male

DRUGS (4)
  1. CYCLOSPORINE [Suspect]
     Indication: PROPHYLAXIS AGAINST TRANSPLANT REJECTION
     Dosage: NOT REPORTED
     Dates: start: 20020701
  2. CYCLOSPORINE [Suspect]
     Indication: GRAFT VERSUS HOST DISEASE
     Dosage: NOT REPORTED
  3. CYCLOSPORINE [Suspect]
  4. UNREPORTED MEDICATION [Concomitant]
     Indication: LOCAL ANAESTHESIA
     Dosage: NOT REPORTED

REACTIONS (2)
  - RENAL FAILURE [None]
  - SINUSITIS ASPERGILLUS [None]
